FAERS Safety Report 5627697-2 (Version None)
Quarter: 2008Q1

REPORT INFORMATION
  Report Type: 
  Country: None (occurrence: None)
  Receive Date: 20080215
  Receipt Date: 20080206
  Transmission Date: 20080703
  Serious: Yes (Hospitalization)
  Sender: FDA-Public Use
  Company Number: US-AVENTIS-200810866US

PATIENT
  Sex: Female

DRUGS (2)
  1. LOVENOX [Suspect]
     Route: 051
     Dates: start: 20080101
  2. COUMADIN [Concomitant]
     Dosage: DOSE: UNK

REACTIONS (3)
  - CHEST PAIN [None]
  - DYSPNOEA [None]
  - HYPOAESTHESIA FACIAL [None]
